FAERS Safety Report 4308680-6 (Version None)
Quarter: 2004Q1

REPORT INFORMATION
  Report Type: 
  Country: None (occurrence: None)
  Receive Date: 20040301
  Receipt Date: 20040301
  Transmission Date: 20041129
  Serious: Yes (Hospitalization)
  Sender: FDA-Public Use
  Company Number: None

PATIENT
  Sex: Male

DRUGS (4)
  1. WARFARIN SODIUM [Suspect]
     Indication: ATRIAL FIBRILLATION
     Dosage: 5 MG PO QD
     Route: 048
     Dates: start: 20040201, end: 20040227
  2. AZITHROMYCIN [Suspect]
     Indication: INFECTION
     Dosage: 250 MG PO QD
     Route: 048
     Dates: start: 20040201, end: 20040224
  3. CEFEPIME [Suspect]
     Dosage: 2 GM2 12HOURS
     Dates: start: 20040211, end: 20040224
  4. PANTOPRAZOLE [Suspect]
     Indication: PROPHYLAXIS
     Dosage: 40 MG PO Q 12 HOURS
     Route: 048
     Dates: start: 20040214, end: 20040227

REACTIONS (3)
  - HAEMORRHAGE [None]
  - INTERNATIONAL NORMALISED RATIO INCREASED [None]
  - THROMBOCYTOPENIA [None]
